FAERS Safety Report 6594583-3 (Version None)
Quarter: 2010Q1

REPORT INFORMATION
  Report Type: 
  Country: None (occurrence: None)
  Receive Date: 20100222
  Receipt Date: 20100209
  Transmission Date: 20100710
  Serious: Yes (Hospitalization)
  Sender: FDA-Public Use
  Company Number: FR-AMGEN-US393707

PATIENT
  Sex: Male

DRUGS (1)
  1. ENBREL [Suspect]
     Indication: DRUG USE FOR UNKNOWN INDICATION
     Route: 058
     Dates: start: 20090801

REACTIONS (5)
  - CONDITION AGGRAVATED [None]
  - CUTANEOUS VASCULITIS [None]
  - POST INFLAMMATORY PIGMENTATION CHANGE [None]
  - RASH MACULAR [None]
  - TOXIC SKIN ERUPTION [None]
